FAERS Safety Report 18658496 (Version 4)
Quarter: 2021Q1

REPORT INFORMATION
  Report Type: Spontaneous
  Country: US (occurrence: US)
  Receive Date: 20201223
  Receipt Date: 20210311
  Transmission Date: 20210419
  Serious: Yes (Hospitalization)
  Sender: FDA-Public Use
  Company Number: US-TEVA-2020-US-1853692

PATIENT
  Age: 41 Year
  Sex: Female

DRUGS (3)
  1. TREPROSTINIL TEVA [Suspect]
     Active Substance: TREPROSTINIL
     Dosage: 24 NG/KG/MIN, CONTINUOUS
     Route: 042
     Dates: start: 2020
  2. TREPROSTINIL TEVA [Suspect]
     Active Substance: TREPROSTINIL
     Dosage: 30NG/KG/MIN, CONTINUOUS
     Route: 042
     Dates: start: 20210205
  3. TREPROSTINIL TEVA [Suspect]
     Active Substance: TREPROSTINIL
     Indication: PULMONARY ARTERIAL HYPERTENSION
     Dosage: 20MG/KG/MIN/ 50 MG/20 ML; 22NKM CONTINUOUS
     Route: 042
     Dates: start: 20200124

REACTIONS (9)
  - COVID-19 [Not Recovered/Not Resolved]
  - Device dislocation [Unknown]
  - Asthenia [Recovering/Resolving]
  - Adverse event [Unknown]
  - Pain in extremity [Recovering/Resolving]
  - Dyspnoea [Recovering/Resolving]
  - Device malfunction [Unknown]
  - Headache [Not Recovered/Not Resolved]
  - Pain [Not Recovered/Not Resolved]

NARRATIVE: CASE EVENT DATE: 2020
